FAERS Safety Report 24727535 (Version 2)
Quarter: 2025Q1

REPORT INFORMATION
  Report Type: Report from Study
  Country: US (occurrence: US)
  Receive Date: 20241212
  Receipt Date: 20250124
  Transmission Date: 20250408
  Serious: No
  Sender: SERVIER
  Company Number: US-SERVIER-S24016137

PATIENT

DRUGS (2)
  1. VORASIDENIB [Suspect]
     Active Substance: VORASIDENIB
     Indication: Brain neoplasm malignant
     Dosage: 40 MG, QD
     Route: 048
     Dates: start: 202409, end: 20241203
  2. VORASIDENIB [Suspect]
     Active Substance: VORASIDENIB
     Dosage: 40 MG, QD
     Route: 048
     Dates: start: 202501

REACTIONS (1)
  - Hepatic enzyme increased [Recovering/Resolving]

NARRATIVE: CASE EVENT DATE: 20240101
